FAERS Safety Report 19768903 (Version 1)
Quarter: 2021Q3

REPORT INFORMATION
  Report Type: Spontaneous
  Country: SE (occurrence: SE)
  Receive Date: 20210831
  Receipt Date: 20210831
  Transmission Date: 20211014
  Serious: Yes (Disabling)
  Sender: FDA-Public Use
  Company Number: SE-TEVA-2021-SE-1946165

PATIENT
  Age: 25 Year
  Sex: Male
  Weight: 105 kg

DRUGS (1)
  1. FLUOXETIN RATIOPHARM 20 MG LOSLIG TABLETT [Suspect]
     Active Substance: FLUOXETINE HYDROCHLORIDE
     Indication: DISSOCIATION
     Dosage: 20 MILLIGRAM DAILY; 20 MG 1 TABLET ,IN THE MORNING
     Route: 048
     Dates: start: 20170701, end: 20210401

REACTIONS (3)
  - Lactose intolerance [Recovered/Resolved]
  - Muscular weakness [Not Recovered/Not Resolved]
  - Amnesia [Not Recovered/Not Resolved]

NARRATIVE: CASE EVENT DATE: 20180101
